FAERS Safety Report 21296669 (Version 1)
Quarter: 2022Q3

REPORT INFORMATION
  Report Type: Spontaneous
  Country: DE (occurrence: DE)
  Receive Date: 20220906
  Receipt Date: 20220906
  Transmission Date: 20221027
  Serious: Yes (Death, Life-Threatening, Hospitalization, Other)
  Sender: FDA-Public Use
  Company Number: DE-MLMSERVICE-2022082437520601

PATIENT
  Age: 34 Year

DRUGS (4)
  1. METHOTREXATE [Suspect]
     Active Substance: METHOTREXATE
     Indication: High grade B-cell lymphoma Burkitt-like lymphoma
     Dosage: CUMULATIVE DOSE: 2 CYCLICAL, HIGH-DOSE
  2. CYTARABINE [Suspect]
     Active Substance: CYTARABINE
     Indication: High grade B-cell lymphoma Burkitt-like lymphoma
     Dosage: CUMULATIVE DOSE: 2 CYCLICAL
  3. THIOTEPA [Suspect]
     Active Substance: THIOTEPA
     Indication: High grade B-cell lymphoma Burkitt-like lymphoma
     Dosage: CUMULATIVE DOSE: 2 CYCLICAL
  4. RITUXIMAB [Suspect]
     Active Substance: RITUXIMAB
     Indication: High grade B-cell lymphoma Burkitt-like lymphoma
     Dosage: CUMULATIVE DOSE: 2 CYCLICAL

REACTIONS (5)
  - Neutropenia [Unknown]
  - Pneumonia [Unknown]
  - Delirium [Unknown]
  - Septic shock [Fatal]
  - Off label use [Unknown]
